FAERS Safety Report 7978444-0 (Version None)
Quarter: 2011Q4

REPORT INFORMATION
  Report Type: 
  Country: None (occurrence: None)
  Receive Date: 20111207
  Receipt Date: 20111126
  Transmission Date: 20120403
  Serious: Yes (Hospitalization, Other)
  Sender: FDA-Public Use
  Company Number: 2011SP055449

PATIENT
  Sex: Female

DRUGS (3)
  1. PEG-INTRON [Suspect]
     Indication: HEPATITIS C
     Dates: start: 20071021, end: 20071209
  2. RIBAVIRIN [Suspect]
     Indication: HEPATITIS C
     Dates: start: 20111127
  3. RIBAVIRIN [Suspect]
     Indication: HEPATITIS C
     Dates: start: 20071021, end: 20071209

REACTIONS (6)
  - DEPRESSION [None]
  - CONDITION AGGRAVATED [None]
  - PAIN [None]
  - HEADACHE [None]
  - MENORRHAGIA [None]
  - ANAEMIA [None]
